FAERS Safety Report 5138375-0 (Version None)
Quarter: 2006Q4

REPORT INFORMATION
  Report Type: 
  Country: None (occurrence: None)
  Receive Date: 20061030
  Receipt Date: 20060629
  Transmission Date: 20070319
  Serious: Yes (Death, Hospitalization)
  Sender: FDA-Public Use
  Company Number: FR-AVENTIS-200612364FR

PATIENT
  Age: 74 Year
  Sex: Male
  Weight: 59 kg

DRUGS (6)
  1. TAXOTERE [Suspect]
     Indication: BRONCHIAL CARCINOMA
     Route: 042
     Dates: start: 20060517, end: 20060517
  2. CISPLATIN [Suspect]
     Indication: BRONCHIAL CARCINOMA
     Route: 042
     Dates: start: 20060517, end: 20060517
  3. RADIOTHERAPY [Suspect]
     Indication: BRONCHIAL CARCINOMA
  4. MONO-TILDIEM [Concomitant]
     Route: 048
  5. CORVASAL [Concomitant]
     Route: 048
  6. KARDEGIC                           /00002703/ [Concomitant]
     Route: 048

REACTIONS (11)
  - ANAEMIA [None]
  - ATRIAL FIBRILLATION [None]
  - BRONCHOSPASM [None]
  - CARDIOPULMONARY FAILURE [None]
  - CEREBRAL ISCHAEMIA [None]
  - CEREBROVASCULAR ACCIDENT [None]
  - DEHYDRATION [None]
  - FEBRILE INFECTION [None]
  - PULMONARY EMBOLISM [None]
  - SUBCLAVIAN ARTERY STENOSIS [None]
  - TACHYARRHYTHMIA [None]
